FAERS Safety Report 12658904 (Version 1)
Quarter: 2016Q3

REPORT INFORMATION
  Report Type: Spontaneous
  Country: US (occurrence: None)
  Receive Date: 20160816
  Receipt Date: 20160816
  Transmission Date: 20161109
  Serious: Yes (Other)
  Sender: FDA-Public Use
  Company Number: None

PATIENT
  Age: 83 Year
  Sex: Female
  Weight: 88 kg

DRUGS (15)
  1. LEFLUNOMIDE 20 MG [Suspect]
     Active Substance: LEFLUNOMIDE
     Indication: RHEUMATOID ARTHRITIS
     Dosage: 20 MG 1 PILL DAILY
     Route: 048
     Dates: start: 201509
  2. ARAVA [Concomitant]
     Active Substance: LEFLUNOMIDE
  3. TRAMADOL. [Concomitant]
     Active Substance: TRAMADOL
  4. ZOCOR [Concomitant]
     Active Substance: SIMVASTATIN
  5. PLAVIX [Concomitant]
     Active Substance: CLOPIDOGREL BISULFATE
  6. POTASSIUM [Concomitant]
     Active Substance: POTASSIUM
  7. ASPIRIN. [Concomitant]
     Active Substance: ASPIRIN
  8. LEFLUNOMIDE. [Concomitant]
     Active Substance: LEFLUNOMIDE
  9. CARDIZEM [Concomitant]
     Active Substance: DILTIAZEM HYDROCHLORIDE
  10. CALCIUM SUPPLEMENT [Concomitant]
     Active Substance: CALCIUM
  11. PREDNISONE. [Concomitant]
     Active Substance: PREDNISONE
  12. LISINOPRIL. [Concomitant]
     Active Substance: LISINOPRIL
  13. VITAMIN D [Concomitant]
     Active Substance: CHOLECALCIFEROL
  14. VITAMIN D [Concomitant]
     Active Substance: CHOLECALCIFEROL
  15. MULTIVITAMIN [Concomitant]
     Active Substance: VITAMINS

REACTIONS (5)
  - Confusional state [None]
  - Mood swings [None]
  - Blood pressure increased [None]
  - Emotional disorder [None]
  - Disturbance in attention [None]

NARRATIVE: CASE EVENT DATE: 201509
